FAERS Safety Report 7690340-5 (Version None)
Quarter: 2011Q3

REPORT INFORMATION
  Report Type: 
  Country: None (occurrence: None)
  Receive Date: 20110818
  Receipt Date: 20110811
  Transmission Date: 20111222
  Serious: Yes (Life-Threatening)
  Sender: FDA-Public Use
  Company Number: JP-SHIRE-ALL1-2011-02459

PATIENT
  Age: 61 Year
  Sex: Female

DRUGS (3)
  1. CALCIUM CARBONATE [Suspect]
     Indication: PRODUCT USED FOR UNKNOWN INDICATION
     Dosage: UNK MG, UNKNOWN
     Route: 048
     Dates: start: 20110715
  2. FOSRENOL [Suspect]
     Indication: HYPERPHOSPHATAEMIA
     Dosage: 750 MG/DAY, 1X/DAY:QD
     Route: 048
     Dates: start: 20110218, end: 20110601
  3. FOSRENOL [Suspect]
     Dosage: 1500 MG, 1X/DAY:QD
     Route: 048
     Dates: start: 20110624, end: 20110713

REACTIONS (1)
  - DUODENAL PERFORATION [None]
